FAERS Safety Report 8517763 (Version 2)
Quarter: 2012Q4

REPORT INFORMATION
  Report Type: 
  Country: JP (occurrence: JP)
  Receive Date: 20120417
  Receipt Date: 20121122
  Transmission Date: 20130627
  Serious: Yes (Other)
  Sender: FDA-Public Use
  Company Number: JP-ROCHE-1057933

PATIENT
  Age: 65 Year
  Sex: Female
  Weight: 49 kg

DRUGS (5)
  1. AVASTIN [Suspect]
     Indication: RECTAL CANCER RECURRENT
     Route: 041
     Dates: start: 20111219, end: 20120127
  2. 5-FU [Suspect]
     Indication: RECTAL CANCER RECURRENT
     Dosage: FOLFIRI regimen
     Route: 040
     Dates: start: 20111219, end: 20120126
  3. 5-FU [Suspect]
     Indication: RECTAL CANCER RECURRENT
     Dosage: FOLFIRI regimen
     Route: 041
     Dates: start: 20111219, end: 201201
  4. TOPOTECIN [Concomitant]
     Indication: RECTAL CANCER RECURRENT
     Dosage: FOLFIRI regimen
     Route: 041
     Dates: start: 20111219, end: 20120126
  5. ISOVORIN [Concomitant]
     Indication: RECTAL CANCER RECURRENT
     Dosage: FOLFIRI regimen
     Route: 041
     Dates: start: 20111219, end: 20120126

REACTIONS (7)
  - Retinal haemorrhage [Recovering/Resolving]
  - Retinal vein occlusion [Recovering/Resolving]
  - Hypertension [Not Recovered/Not Resolved]
  - Gastrooesophageal reflux disease [Unknown]
  - Pain [Unknown]
  - Diarrhoea [Unknown]
  - Macular oedema [Recovering/Resolving]
